FAERS Safety Report 5507009-5 (Version None)
Quarter: 2007Q4

REPORT INFORMATION
  Report Type: 
  Country: None (occurrence: None)
  Receive Date: 20071105
  Receipt Date: 20071012
  Transmission Date: 20080405
  Serious: No
  Sender: FDA-Public Use
  Company Number: US-BOEHRINGER INGELHEIM PHARMACEUTICALS, INC.-2007-BP-20678BP

PATIENT
  Sex: Female

DRUGS (1)
  1. ATROVENT HFA [Suspect]
     Indication: ASTHMA
     Route: 055
     Dates: start: 20070701

REACTIONS (1)
  - WHEEZING [None]
